FAERS Safety Report 21374934 (Version 1)
Quarter: 2022Q3

REPORT INFORMATION
  Report Type: Spontaneous
  Country: US (occurrence: None)
  Receive Date: 20220923
  Receipt Date: 20220923
  Transmission Date: 20221027
  Serious: Yes (Other)
  Sender: FDA-Public Use
  Company Number: None

PATIENT
  Age: 38 Year
  Sex: Female
  Weight: 91.8 kg

DRUGS (11)
  1. AZATHIOPRINE [Suspect]
     Active Substance: AZATHIOPRINE
     Indication: Rheumatoid arthritis
     Dosage: 1 TABLET DAILY ORAL?
     Route: 048
     Dates: start: 20220919
  2. AZATHIOPRINE [Suspect]
     Active Substance: AZATHIOPRINE
     Indication: Systemic lupus erythematosus
  3. CYMBALTA [Concomitant]
     Active Substance: DULOXETINE HYDROCHLORIDE
  4. METOPROLOL [Concomitant]
     Active Substance: METOPROLOL
  5. WELLBUTRIN [Concomitant]
     Active Substance: BUPROPION HYDROCHLORIDE
  6. spirnolactolone [Concomitant]
  7. PREDNISONE [Concomitant]
     Active Substance: PREDNISONE
  8. PREVACID [Concomitant]
     Active Substance: LANSOPRAZOLE
  9. XANAX [Concomitant]
     Active Substance: ALPRAZOLAM
  10. SINGULAIR [Concomitant]
     Active Substance: MONTELUKAST SODIUM
  11. GABAPENTIN [Concomitant]
     Active Substance: GABAPENTIN

REACTIONS (3)
  - Influenza like illness [None]
  - Bone pain [None]
  - Arthralgia [None]

NARRATIVE: CASE EVENT DATE: 20220923
